FAERS Safety Report 16865178 (Version 2)
Quarter: 2020Q1

REPORT INFORMATION
  Report Type: Spontaneous
  Country: JP (occurrence: JP)
  Receive Date: 20190930
  Receipt Date: 20200302
  Transmission Date: 20200409
  Serious: No
  Sender: FDA-Public Use
  Company Number: JP-AMGEN-JPNSP2019159691

PATIENT
  Age: 65 Year
  Sex: Female
  Weight: 46.3 kg

DRUGS (8)
  1. VECTIBIX [Suspect]
     Active Substance: PANITUMUMAB
     Indication: RECTAL CANCER RECURRENT
     Dosage: 240 MILLIGRAM, Q2WK
     Route: 041
     Dates: start: 20160816
  2. FLUOROURACIL. [Suspect]
     Active Substance: FLUOROURACIL
     Dosage: UNK
     Route: 065
     Dates: start: 20170606
  3. CALCIUM LEVOFOLINATE [Suspect]
     Active Substance: LEVOLEUCOVORIN CALCIUM
     Indication: PRODUCT USED FOR UNKNOWN INDICATION
     Dosage: UNK
     Route: 065
     Dates: start: 20160816
  4. CALCIUM LEVOFOLINATE [Suspect]
     Active Substance: LEVOLEUCOVORIN CALCIUM
     Dosage: UNK
     Route: 065
     Dates: start: 20170606
  5. IRINOTECAN HYDROCHLORIDE. [Suspect]
     Active Substance: IRINOTECAN HYDROCHLORIDE
     Dosage: UNK
     Route: 065
     Dates: start: 20170606
  6. FLUOROURACIL. [Suspect]
     Active Substance: FLUOROURACIL
     Indication: PRODUCT USED FOR UNKNOWN INDICATION
     Dosage: UNK
     Route: 065
     Dates: start: 20160816
  7. VECTIBIX [Suspect]
     Active Substance: PANITUMUMAB
     Dosage: 200 MILLIGRAM, Q2WK
     Route: 041
     Dates: start: 20170606
  8. IRINOTECAN HYDROCHLORIDE. [Suspect]
     Active Substance: IRINOTECAN HYDROCHLORIDE
     Indication: PRODUCT USED FOR UNKNOWN INDICATION
     Dosage: UNK
     Route: 065
     Dates: start: 20160816

REACTIONS (3)
  - Dermatitis acneiform [Unknown]
  - Dermatitis acneiform [Recovering/Resolving]
  - Dermatitis acneiform [Unknown]

NARRATIVE: CASE EVENT DATE: 20160816
